FAERS Safety Report 9959971 (Version 7)
Quarter: 2015Q1

REPORT INFORMATION
  Report Type: Spontaneous
  Country: US (occurrence: None)
  Receive Date: 20140228
  Receipt Date: 20150102
  Transmission Date: 20150721
  Serious: Yes (Other)
  Sender: FDA-Public Use
  Company Number: 2014-US-001957

PATIENT
  Age: 50 Year
  Sex: Female

DRUGS (2)
  1. XYREM [Suspect]
     Active Substance: SODIUM OXYBATE
     Indication: INSOMNIA
     Route: 048
     Dates: start: 201312
  2. ANTIALLERGIC AGENTS, EXCL. CORTICOSTEROIDS [Concomitant]

REACTIONS (17)
  - Post procedural complication [None]
  - Dehydration [None]
  - Off label use [None]
  - Hip surgery [None]
  - Bursitis [None]
  - Anxiety [None]
  - Dry throat [None]
  - Panic reaction [None]
  - Nervousness [None]
  - Thyroid neoplasm [None]
  - Fluid retention [None]
  - Formication [None]
  - Dry mouth [None]
  - Feeling jittery [None]
  - Feeling abnormal [None]
  - Tremor [None]
  - Incorrect dose administered [None]
